FAERS Safety Report 18315425 (Version 1)
Quarter: 2020Q3

REPORT INFORMATION
  Report Type: Report from Study
  Country: JP (occurrence: JP)
  Receive Date: 20200926
  Receipt Date: 20200926
  Transmission Date: 20201103
  Serious: Yes (Other)
  Sender: FDA-Public Use
  Company Number: JP-UCBSA-2020038173

PATIENT
  Sex: Female

DRUGS (1)
  1. LEVETIRACETAM. [Suspect]
     Active Substance: LEVETIRACETAM
     Indication: PRODUCT USED FOR UNKNOWN INDICATION
     Route: 048

REACTIONS (7)
  - Irritability [Unknown]
  - Depressive symptom [Unknown]
  - Somnolence [Unknown]
  - Urine output decreased [Unknown]
  - Seizure [Unknown]
  - Aggression [Unknown]
  - Oedema [Unknown]
